FAERS Safety Report 15159898 (Version 2)
Quarter: 2018Q3

REPORT INFORMATION
  Report Type: Spontaneous
  Country: JP (occurrence: JP)
  Receive Date: 20180718
  Receipt Date: 20180822
  Transmission Date: 20181010
  Serious: Yes (Death, Other)
  Sender: FDA-Public Use
  Company Number: JP-SA-2018SA113623

PATIENT
  Age: 72 Year
  Sex: Male
  Weight: 41.2 kg

DRUGS (9)
  1. ZALTRAP [Suspect]
     Active Substance: ZIV-AFLIBERCEPT
     Indication: COLON CANCER
  2. TOPOTECIN [Suspect]
     Active Substance: IRINOTECAN HYDROCHLORIDE
     Indication: TUMOUR MARKER INCREASED
     Dosage: 100 MG, QOW
     Route: 041
     Dates: start: 20180209, end: 20180209
  3. DEXART [Concomitant]
     Active Substance: DEXAMETHASONE SODIUM PHOSPHATE
     Indication: PREMEDICATION
     Dosage: 6.6 MG, QOW
     Route: 065
     Dates: start: 20180209, end: 20180209
  4. RESTAMIN [DIPHENHYDRAMINE HYDROCHLORIDE] [Concomitant]
     Indication: PREMEDICATION
     Dosage: 10 MG, QOW
     Route: 048
     Dates: start: 20180209, end: 20180209
  5. FLUOROURACIL. [Suspect]
     Active Substance: FLUOROURACIL
     Indication: TUMOUR MARKER INCREASED
     Dosage: 3300 MG, 46HR, QOW
     Route: 041
     Dates: start: 20180209, end: 20180211
  6. LEVOFOLINATE [CALCIUM LEVOFOLINATE] [Suspect]
     Active Substance: LEVOLEUCOVORIN CALCIUM
     Indication: TUMOUR MARKER INCREASED
     Dosage: 280 MG, QOW
     Route: 041
     Dates: start: 20180209, end: 20180209
  7. ZALTRAP [Suspect]
     Active Substance: ZIV-AFLIBERCEPT
     Indication: TUMOUR MARKER INCREASED
     Dosage: 160 MG, QOW
     Route: 041
     Dates: start: 20180209, end: 20180209
  8. EMEND [APREPITANT] [Concomitant]
     Indication: PREMEDICATION
     Dosage: 12.5 MG, QOW
     Route: 048
     Dates: start: 20180209, end: 20180211
  9. ALOXI [Concomitant]
     Active Substance: PALONOSETRON HYDROCHLORIDE
     Indication: PREMEDICATION
     Dosage: 0.75 MG, QOW
     Route: 042
     Dates: start: 20180209, end: 20180209

REACTIONS (6)
  - Neutropenia [Unknown]
  - Cough [Unknown]
  - Hypertension [Unknown]
  - Productive cough [Unknown]
  - Bone marrow failure [Unknown]
  - Pyrexia [Unknown]

NARRATIVE: CASE EVENT DATE: 20180223
